FAERS Safety Report 9277310 (Version 1)
Quarter: 2013Q2

REPORT INFORMATION
  Report Type: Spontaneous
  Country: GB (occurrence: GB)
  Receive Date: 20130508
  Receipt Date: 20130508
  Transmission Date: 20140414
  Serious: Yes (Other)
  Sender: FDA-Public Use
  Company Number: GB-ACCORD-017447

PATIENT
  Age: 46 Year
  Sex: Male
  Weight: 84.7 kg

DRUGS (2)
  1. TACROLIMUS [Suspect]
     Indication: PRODUCT USED FOR UNKNOWN INDICATION
     Dosage: DOSAGE FORM; UNSPECIFIED
     Route: 065
  2. STELARA [Suspect]
     Indication: PSORIASIS
     Dosage: DOSAGE FORM: LIQUID
     Route: 058
     Dates: start: 201101

REACTIONS (4)
  - Coeliac disease [Recovered/Resolved]
  - Eczema [Recovered/Resolved]
  - Psoriasis [Unknown]
  - Weight decreased [Recovered/Resolved]
